FAERS Safety Report 6648305-8 (Version None)
Quarter: 2010Q1

REPORT INFORMATION
  Report Type: 
  Country: None (occurrence: None)
  Receive Date: 20100324
  Receipt Date: 20100318
  Transmission Date: 20100710
  Serious: Yes (Death)
  Sender: FDA-Public Use
  Company Number: JP-BAYER-201011064BYL

PATIENT
  Age: 75 Year
  Sex: Female

DRUGS (4)
  1. NEXAVAR [Suspect]
     Indication: RENAL CANCER
     Dosage: TOTAL DAILY DOSE: 800 MG  UNIT DOSE: 200 MG
     Route: 048
     Dates: start: 20100210, end: 20100226
  2. BUFFERIN [Concomitant]
     Dosage: UNIT DOSE: 81 MG
     Route: 048
  3. LANIRAPID [Concomitant]
     Dosage: UNIT DOSE: 0.1 MG
     Route: 048
  4. KISALART L [Concomitant]
     Dosage: UNIT DOSE: 10 MG
     Route: 048

REACTIONS (3)
  - HYPOALBUMINAEMIA [None]
  - HYPONATRAEMIA [None]
  - THROMBOCYTOPENIA [None]
